FAERS Safety Report 10752072 (Version 1)
Quarter: 2015Q1

REPORT INFORMATION
  Report Type: Report from Study
  Country: FR (occurrence: FR)
  Receive Date: 20150130
  Receipt Date: 20150130
  Transmission Date: 20150721
  Serious: Yes (Hospitalization, Other)
  Sender: FDA-Public Use
  Company Number: FR-ASTELLAS-2014US000523

PATIENT
  Age: 15 Year
  Sex: Female

DRUGS (2)
  1. TACROLIMUS. [Suspect]
     Active Substance: TACROLIMUS
     Indication: DERMATITIS ATOPIC
     Dosage: 0.03 %, ONCE DAILY, TWICE WEEKLY
     Route: 061
     Dates: start: 20110801
  2. TACROLIMUS. [Suspect]
     Active Substance: TACROLIMUS
     Dosage: 0.03 %, UNKNOWN FREQ.
     Route: 061
     Dates: start: 20100128

REACTIONS (2)
  - Surgery [Unknown]
  - Foot deformity [Unknown]

NARRATIVE: CASE EVENT DATE: 20131023
